FAERS Safety Report 16105112 (Version 1)
Quarter: 2019Q2

REPORT INFORMATION
  Report Type: Spontaneous
  Country: US (occurrence: US)
  Receive Date: 20190321
  Receipt Date: 20190321
  Transmission Date: 20190711
  Serious: Yes (Death)
  Sender: FDA-Public Use
  Company Number: None

PATIENT
  Age: 58 Year
  Sex: Male

DRUGS (5)
  1. TRAMADOL. [Concomitant]
     Active Substance: TRAMADOL
     Dates: start: 20190225
  2. ATORVASTATIN 20 MG [Concomitant]
     Active Substance: ATORVASTATIN
  3. AUBAGIO [Suspect]
     Active Substance: TERIFLUNOMIDE
     Indication: MULTIPLE SCLEROSIS
     Route: 048
     Dates: start: 20171011, end: 20190228
  4. VALACYCLOVIR [Concomitant]
     Active Substance: VALACYCLOVIR HYDROCHLORIDE
     Dates: start: 20190225
  5. OXYCODONE 15 MG [Concomitant]
     Active Substance: OXYCODONE
     Dates: start: 20190225

REACTIONS (1)
  - Death [None]

NARRATIVE: CASE EVENT DATE: 20190228
